FAERS Safety Report 19950762 (Version 2)
Quarter: 2021Q4

REPORT INFORMATION
  Report Type: Spontaneous
  Country: DE (occurrence: None)
  Receive Date: 20211013
  Receipt Date: 20211231
  Transmission Date: 20220303
  Serious: Yes (Other)
  Sender: FDA-Public Use
  Company Number: DE-002147023-NVSC2021DE218266

PATIENT
  Age: 41 Year
  Sex: Female
  Weight: 45.8 kg

DRUGS (6)
  1. MOXIFLOXACIN [Suspect]
     Active Substance: MOXIFLOXACIN
     Indication: Lymph node tuberculosis
     Dosage: UNK
     Route: 065
     Dates: start: 202006
  2. LINEZOLID [Suspect]
     Active Substance: LINEZOLID
     Indication: Lymph node tuberculosis
     Dosage: UNK
     Route: 065
     Dates: start: 202006, end: 202106
  3. PYRAZINAMIDE [Suspect]
     Active Substance: PYRAZINAMIDE
     Indication: Lymph node tuberculosis
     Dosage: UNK
     Route: 065
     Dates: start: 202006, end: 202012
  4. PYRAZINAMIDE [Suspect]
     Active Substance: PYRAZINAMIDE
     Dosage: UNK
     Route: 065
     Dates: start: 2021
  5. CLOFAZIMINE [Suspect]
     Active Substance: CLOFAZIMINE
     Indication: Lymph node tuberculosis
     Dosage: 100 MG, 1X/DAY
     Route: 048
     Dates: start: 202006
  6. ETHAMBUTOL [Suspect]
     Active Substance: ETHAMBUTOL HYDROCHLORIDE
     Indication: Lymph node tuberculosis
     Dosage: UNK
     Route: 065
     Dates: start: 202006, end: 202011

REACTIONS (4)
  - Optic neuropathy [Unknown]
  - Neuropathy peripheral [Unknown]
  - Off label use [Unknown]
  - Drug resistance [Unknown]

NARRATIVE: CASE EVENT DATE: 20200101
